FAERS Safety Report 10817611 (Version 1)
Quarter: 2015Q1

REPORT INFORMATION
  Report Type: Spontaneous
  Country: US (occurrence: US)
  Receive Date: 20150218
  Receipt Date: 20150218
  Transmission Date: 20150721
  Serious: No
  Sender: FDA-Public Use
  Company Number: US-ABBVIE-14K-163-1289302-00

PATIENT
  Age: 45 Year
  Sex: Female
  Weight: 73.09 kg

DRUGS (6)
  1. HUMIRA [Suspect]
     Active Substance: ADALIMUMAB
     Dosage: 2 WEEKS LATER
     Route: 065
     Dates: start: 2014
  2. HUMIRA [Suspect]
     Active Substance: ADALIMUMAB
     Indication: CROHN^S DISEASE
     Route: 065
     Dates: start: 201402, end: 201402
  3. ADVIL [Concomitant]
     Active Substance: IBUPROFEN
     Indication: PRODUCT USED FOR UNKNOWN INDICATION
  4. HUMIRA [Suspect]
     Active Substance: ADALIMUMAB
     Dosage: 2 WEEKS LATER
     Route: 065
     Dates: start: 2014, end: 2014
  5. CALCIUM [Concomitant]
     Active Substance: CALCIUM
     Indication: PRODUCT USED FOR UNKNOWN INDICATION
  6. TRAMADOL [Concomitant]
     Active Substance: TRAMADOL
     Indication: PRODUCT USED FOR UNKNOWN INDICATION

REACTIONS (8)
  - Injection site mass [Unknown]
  - Crohn^s disease [Not Recovered/Not Resolved]
  - Injection site erythema [Recovered/Resolved]
  - Injection site erythema [Recovered/Resolved]
  - Diarrhoea [Not Recovered/Not Resolved]
  - Incorrect dose administered [Unknown]
  - Injection site induration [Not Recovered/Not Resolved]
  - Injection site induration [Recovered/Resolved]

NARRATIVE: CASE EVENT DATE: 2014
